FAERS Safety Report 6647882-0 (Version None)
Quarter: 2010Q1

REPORT INFORMATION
  Report Type: 
  Country: None (occurrence: None)
  Receive Date: 20100324
  Receipt Date: 20100315
  Transmission Date: 20100710
  Serious: Yes (Hospitalization)
  Sender: FDA-Public Use
  Company Number: FR-ASTRAZENECA-2010SE11959

PATIENT
  Age: 50 Year
  Sex: Female

DRUGS (8)
  1. NEXIUM [Suspect]
     Route: 048
  2. HUMIRA [Suspect]
     Route: 058
     Dates: start: 20080101, end: 20091223
  3. ESTRADIOL [Suspect]
     Route: 065
     Dates: end: 20091223
  4. ARAVA [Suspect]
     Dates: end: 20091223
  5. SKENAN [Suspect]
     Route: 048
  6. ACTISKENAN [Suspect]
     Route: 048
  7. DAFALGAN [Suspect]
     Route: 048
  8. BUTAZOLIDINE [Suspect]
     Dates: end: 20090801

REACTIONS (1)
  - OVARIAN CANCER [None]
